FAERS Safety Report 17256960 (Version 1)
Quarter: 2020Q1

REPORT INFORMATION
  Report Type: Spontaneous
  Country: US (occurrence: US)
  Receive Date: 20200110
  Receipt Date: 20200110
  Transmission Date: 20200409
  Serious: Yes (Hospitalization, Other)
  Sender: FDA-Public Use
  Company Number: US-NOVOPROD-705307

PATIENT
  Age: 44 Year
  Sex: Male

DRUGS (2)
  1. NOVOLIN R [Suspect]
     Active Substance: INSULIN HUMAN
     Indication: SUICIDE ATTEMPT
     Dosage: UNK
     Route: 058
     Dates: start: 2019
  2. NOVOLOG [Suspect]
     Active Substance: INSULIN ASPART
     Indication: SUICIDE ATTEMPT
     Dosage: UNK
     Route: 058
     Dates: start: 2019

REACTIONS (3)
  - Suicide attempt [Unknown]
  - Intentional overdose [Unknown]
  - Intentional product misuse [Unknown]

NARRATIVE: CASE EVENT DATE: 2019
